FAERS Safety Report 11750396 (Version 2)
Quarter: 2015Q4

REPORT INFORMATION
  Report Type: Report from Study
  Country: US (occurrence: US)
  Receive Date: 20151118
  Receipt Date: 20151124
  Transmission Date: 20160304
  Serious: Yes (Hospitalization, Other)
  Sender: FDA-Public Use
  Company Number: PHEH2015US023687

PATIENT
  Sex: Female

DRUGS (1)
  1. GILENYA [Suspect]
     Active Substance: FINGOLIMOD HYDROCHLORIDE
     Indication: RELAPSING-REMITTING MULTIPLE SCLEROSIS
     Dosage: 0.5 MG, QD
     Route: 048
     Dates: start: 201507, end: 20151107

REACTIONS (7)
  - Carotid artery occlusion [Recovered/Resolved with Sequelae]
  - Motor dysfunction [Unknown]
  - Confusional state [Unknown]
  - Headache [Unknown]
  - Disorientation [Unknown]
  - Transient ischaemic attack [Unknown]
  - Aphasia [Unknown]

NARRATIVE: CASE EVENT DATE: 20151107
